FAERS Safety Report 14761372 (Version 6)
Quarter: 2023Q2

REPORT INFORMATION
  Report Type: Report from Study
  Country: CO (occurrence: CO)
  Receive Date: 20180415
  Receipt Date: 20230401
  Transmission Date: 20230722
  Serious: Yes (Hospitalization)
  Sender: FDA-Public Use
  Company Number: PHHY2018CO064948

PATIENT
  Sex: Female
  Weight: 60 kg

DRUGS (3)
  1. COSENTYX [Suspect]
     Active Substance: SECUKINUMAB
     Indication: Psoriasis
     Dosage: 300 MG, QMO
     Route: 058
     Dates: start: 20170612
  2. COSENTYX [Suspect]
     Active Substance: SECUKINUMAB
     Dosage: 300 MG, QMO
     Route: 058
  3. MORINGA [Concomitant]
     Indication: Chronic gastritis
     Dosage: UNK
     Route: 065

REACTIONS (13)
  - Asthmatic crisis [Recovering/Resolving]
  - Feeling of despair [Recovered/Resolved]
  - Dyspnoea [Recovered/Resolved]
  - Cough [Recovered/Resolved]
  - Asthma [Recovering/Resolving]
  - Cough [Unknown]
  - Malaise [Unknown]
  - Thyroid disorder [Unknown]
  - Weight decreased [Unknown]
  - Hyperhidrosis [Unknown]
  - Sensitivity to weather change [Unknown]
  - Pyrexia [Recovering/Resolving]
  - Influenza [Unknown]
